FAERS Safety Report 17547093 (Version 2)
Quarter: 2020Q2

REPORT INFORMATION
  Report Type: Report from Study
  Country: MX (occurrence: MX)
  Receive Date: 20200316
  Receipt Date: 20200401
  Transmission Date: 20200713
  Serious: Yes (Death, Other)
  Sender: FDA-Public Use
  Company Number: PHHY2019MX107919

PATIENT
  Age: 77 Year
  Sex: Male
  Weight: 73 kg

DRUGS (1)
  1. EXELON PATCH [Suspect]
     Active Substance: RIVASTIGMINE
     Indication: DEMENTIA ALZHEIMER^S TYPE
     Dosage: 13.3 MG, QD PATCH 15 (CM2)
     Route: 062
     Dates: start: 201706

REACTIONS (14)
  - Incontinence [Not Recovered/Not Resolved]
  - Injury [Recovering/Resolving]
  - Limb discomfort [Unknown]
  - Infarction [Unknown]
  - General physical health deterioration [Unknown]
  - Vision blurred [Recovering/Resolving]
  - Dizziness [Unknown]
  - Memory impairment [Not Recovered/Not Resolved]
  - Visual impairment [Unknown]
  - Eye contusion [Unknown]
  - Infection [Fatal]
  - Disease progression [Not Recovered/Not Resolved]
  - Fall [Recovering/Resolving]
  - Subdural haematoma [Unknown]

NARRATIVE: CASE EVENT DATE: 201905
